FAERS Safety Report 7428604-2 (Version None)
Quarter: 2011Q2

REPORT INFORMATION
  Report Type: 
  Country: None (occurrence: None)
  Receive Date: 20110421
  Receipt Date: 20110316
  Transmission Date: 20111010
  Serious: Yes (Hospitalization)
  Sender: FDA-Public Use
  Company Number: US-BAYER-201040734NA

PATIENT
  Age: 24 Year
  Sex: Female
  Weight: 68.027 kg

DRUGS (4)
  1. RETIN-A [Concomitant]
  2. BENZAMYCIN [Concomitant]
  3. YASMIN [Suspect]
     Indication: ACNE
     Dosage: UNK
     Dates: start: 20031001, end: 20031101
  4. YASMIN [Suspect]
     Indication: CONTRACEPTION

REACTIONS (2)
  - SUBCLAVIAN VEIN THROMBOSIS [None]
  - PAIN [None]
